FAERS Safety Report 17605510 (Version 2)
Quarter: 2020Q3

REPORT INFORMATION
  Report Type: Spontaneous
  Country: US (occurrence: US)
  Receive Date: 20200331
  Receipt Date: 20200903
  Transmission Date: 20201102
  Serious: No
  Sender: FDA-Public Use
  Company Number: US-SA-2020SA077725

PATIENT

DRUGS (2)
  1. KEVZARA [Suspect]
     Active Substance: SARILUMAB
     Dosage: 200 MG (FREQUENCY: OTHER)
     Route: 058
     Dates: start: 201908
  2. KEVZARA [Suspect]
     Active Substance: SARILUMAB
     Dosage: 200 MG (FREQUENCY: OTHER)
     Route: 058
     Dates: start: 202001, end: 202008

REACTIONS (2)
  - Cough [Unknown]
  - Intestinal polyp [Unknown]

NARRATIVE: CASE EVENT DATE: 20200501
